FAERS Safety Report 4960847-X (Version None)
Quarter: 2006Q2

REPORT INFORMATION
  Report Type: 
  Country: None (occurrence: None)
  Receive Date: 20060403
  Receipt Date: 20060320
  Transmission Date: 20061013
  Serious: Yes (Hospitalization)
  Sender: FDA-Public Use
  Company Number: NZ-ROCHE-440921

PATIENT
  Age: 32 Year
  Sex: Female
  Weight: 59 kg

DRUGS (7)
  1. PEG-INTERFERON ALFA 2A (RO 25-8310) [Suspect]
     Route: 058
     Dates: start: 20051003, end: 20060202
  2. RIBAVIRIN [Suspect]
     Route: 048
     Dates: start: 20051003, end: 20060202
  3. CYCLOSPORINE [Concomitant]
  4. PREDNISONE [Concomitant]
  5. LOSEC [Concomitant]
  6. INHIBACE [Concomitant]
  7. METHADONE HCL [Concomitant]

REACTIONS (2)
  - LIVER TRANSPLANT REJECTION [None]
  - TRANSPLANT REJECTION [None]
